FAERS Safety Report 6905215-6 (Version None)
Quarter: 2010Q3

REPORT INFORMATION
  Report Type: 
  Country: None (occurrence: None)
  Receive Date: 20100804
  Receipt Date: 20100726
  Transmission Date: 20110219
  Serious: Yes (Life-Threatening, Hospitalization)
  Sender: FDA-Public Use
  Company Number: AU-TYCO HEALTHCARE/MALLINCKRODT-T201001703

PATIENT
  Sex: Male

DRUGS (2)
  1. EXALGO [Suspect]
     Indication: PAIN
     Dosage: 1/4 TABLET PER DAY
  2. EXALGO [Suspect]
     Dosage: 64 MG DAILY FOR TWO DAYS
     Dates: end: 20100710

REACTIONS (2)
  - RESPIRATORY ARREST [None]
  - WRONG TECHNIQUE IN DRUG USAGE PROCESS [None]
